FAERS Safety Report 4700546-2 (Version None)
Quarter: 2005Q2

REPORT INFORMATION
  Report Type: 
  Country: None (occurrence: None)
  Receive Date: 20050627
  Receipt Date: 20050627
  Transmission Date: 20051028
  Serious: Yes (Hospitalization)
  Sender: FDA-Public Use
  Company Number: None

PATIENT
  Age: 80 Year
  Sex: Male
  Weight: 85 kg

DRUGS (2)
  1. WARFARIN     5MG [Suspect]
     Indication: ATRIAL FIBRILLATION
     Dosage: 5MG   QD-EXCEPT MON-  ORAL;  2.5MG  Q MONDAY  ORAL
     Route: 048
     Dates: start: 20000717, end: 20050624
  2. WARFARIN     5MG [Suspect]
     Indication: MITRAL VALVE REPLACEMENT
     Dosage: 5MG   QD-EXCEPT MON-  ORAL;  2.5MG  Q MONDAY  ORAL
     Route: 048
     Dates: start: 20000717, end: 20050624

REACTIONS (1)
  - LOWER GASTROINTESTINAL HAEMORRHAGE [None]
